FAERS Safety Report 17607997 (Version 2)
Quarter: 2020Q2

REPORT INFORMATION
  Report Type: Report from Study
  Country: US (occurrence: US)
  Receive Date: 20200401
  Receipt Date: 20200529
  Transmission Date: 20200713
  Serious: No
  Sender: FDA-Public Use
  Company Number: NVSC2020US084736

PATIENT
  Sex: Female

DRUGS (2)
  1. COSENTYX [Suspect]
     Active Substance: SECUKINUMAB
     Indication: PSORIASIS
     Dosage: 300 MG, QW (300 MG Q WEEKLY, 5 WEEKS THEN, 300 MG Q 4 WEEKS), BENEATH THE SKIN, USUALLY VIA INJECTIO
     Route: 058
     Dates: start: 20191215
  2. COSENTYX [Suspect]
     Active Substance: SECUKINUMAB
     Dosage: 300 MG
     Route: 058
     Dates: start: 20200115

REACTIONS (5)
  - Drug ineffective [Unknown]
  - Rash [Unknown]
  - Rash pruritic [Unknown]
  - Erythema [Unknown]
  - Eye pruritus [Unknown]
